FAERS Safety Report 15532091 (Version 2)
Quarter: 2019Q1

REPORT INFORMATION
  Report Type: Spontaneous
  Country: US (occurrence: US)
  Receive Date: 20181019
  Receipt Date: 20190318
  Transmission Date: 20190417
  Serious: Yes (Other)
  Sender: FDA-Public Use
  Company Number: US-AUROBINDO-AUR-APL-2018-050654

PATIENT

DRUGS (2)
  1. ESTROGEN NOS [Suspect]
     Active Substance: ESTROGENS
     Indication: PRODUCT USED FOR UNKNOWN INDICATION
     Route: 048
  2. SPIRONOLACTONE. [Suspect]
     Active Substance: SPIRONOLACTONE
     Indication: ANTIANDROGEN THERAPY
     Dosage: 100 MILLIGRAM, DAILY
     Route: 065

REACTIONS (2)
  - Bulbospinal muscular atrophy congenital [Unknown]
  - Toxicity to various agents [Unknown]
